FAERS Safety Report 21974610 (Version 2)
Quarter: 2023Q1

REPORT INFORMATION
  Report Type: Spontaneous
  Country: None (occurrence: SE)
  Receive Date: 20230209
  Receipt Date: 20230209
  Transmission Date: 20230417
  Serious: Yes (Other)
  Sender: FDA-Public Use
  Company Number: SE-Hill Dermaceuticals, Inc.-2137730

PATIENT
  Age: 74 Year
  Sex: Male

DRUGS (1)
  1. TOLAK [Suspect]
     Active Substance: FLUOROURACIL
     Indication: Actinic keratosis
     Route: 061

REACTIONS (1)
  - Ophthalmic herpes zoster [Recovered/Resolved with Sequelae]
